FAERS Safety Report 6154884-X (Version None)
Quarter: 2009Q2

REPORT INFORMATION
  Report Type: 
  Country: None (occurrence: None)
  Receive Date: 20090414
  Receipt Date: 20090412
  Transmission Date: 20091009
  Serious: Yes (Other)
  Sender: FDA-Public Use
  Company Number: US-PFIZER INC-2009175903

PATIENT
  Sex: Female

DRUGS (1)
  1. ALDACTAZIDE [Suspect]

REACTIONS (4)
  - ALOPECIA [None]
  - GASTRIC NEOPLASM [None]
  - LIPOMA [None]
  - NEOPLASM SKIN [None]
